FAERS Safety Report 8822692 (Version 1)
Quarter: 2012Q4

REPORT INFORMATION
  Report Type: 
  Country: FR (occurrence: FR)
  Receive Date: 20121003
  Receipt Date: 20121003
  Transmission Date: 20130627
  Serious: Yes (Hospitalization, Other)
  Sender: FDA-Public Use
  Company Number: FR-BRISTOL-MYERS SQUIBB COMPANY-16993339

PATIENT
  Age: 70 Year
  Sex: Male

DRUGS (12)
  1. COUMADIN TABS 5 MG [Suspect]
     Route: 048
     Dates: end: 20120831
  2. KARDEGIC [Suspect]
     Dosage: powder oral solution in a single dose sachet
     Route: 048
  3. IXPRIM [Concomitant]
  4. NEBIVOLOL [Concomitant]
  5. TAREG [Concomitant]
  6. TEMESTA [Concomitant]
  7. XATRAL [Concomitant]
  8. NOVORAPID [Concomitant]
  9. LANTUS [Concomitant]
  10. VOLTARENE EMULGEL [Concomitant]
  11. LASILIX [Concomitant]
  12. TAHOR [Concomitant]

REACTIONS (4)
  - Muscle haemorrhage [Recovered/Resolved with Sequelae]
  - Paralysis [Recovered/Resolved with Sequelae]
  - Wound infection [Unknown]
  - Anaemia [Unknown]
